FAERS Safety Report 4559925-9 (Version None)
Quarter: 2005Q1

REPORT INFORMATION
  Report Type: 
  Country: None (occurrence: None)
  Receive Date: 20050103
  Receipt Date: 20040826
  Transmission Date: 20050727
  Serious: Yes (Other)
  Sender: FDA-Public Use
  Company Number: 2004UW18095

PATIENT

DRUGS (2)
  1. CRESTOR [Suspect]
  2. AVANDIA [Suspect]

REACTIONS (2)
  - BLOOD TRIGLYCERIDES INCREASED [None]
  - DRUG INTERACTION [None]
